FAERS Safety Report 8609380-4 (Version None)
Quarter: 2012Q3

REPORT INFORMATION
  Report Type: 
  Country: None (occurrence: None)
  Receive Date: 20120821
  Receipt Date: 20120813
  Transmission Date: 20120928
  Serious: Yes (Other)
  Sender: FDA-Public Use
  Company Number: US-CELGENEUS-163-21880-12081535

PATIENT
  Sex: Female

DRUGS (13)
  1. VITAMIN D [Concomitant]
     Route: 065
  2. NEXIUM [Concomitant]
     Route: 065
  3. SYNTHROID [Concomitant]
     Route: 065
  4. TRAMADOL HCL [Concomitant]
     Route: 065
  5. REVLIMID [Suspect]
     Indication: MULTIPLE MYELOMA
     Dosage: 5 MILLIGRAM
     Route: 048
     Dates: start: 20071010
  6. MELOXICAM [Concomitant]
     Route: 065
  7. RALOXIFENE HYDROCHLORIDE [Concomitant]
     Route: 065
  8. NASONEX [Concomitant]
     Route: 065
  9. COUMADIN [Concomitant]
     Route: 065
  10. LOMOTIL [Concomitant]
     Route: 065
  11. VELCADE [Concomitant]
     Route: 065
  12. MULTI-VITAMINS [Concomitant]
     Route: 065
  13. ACETAMINOPHEN [Concomitant]
     Route: 065

REACTIONS (2)
  - MALIGNANT MELANOMA [None]
  - INCREASED TENDENCY TO BRUISE [None]
